FAERS Safety Report 7443186-7 (Version None)
Quarter: 2011Q2

REPORT INFORMATION
  Report Type: 
  Country: None (occurrence: None)
  Receive Date: 20110428
  Receipt Date: 20110420
  Transmission Date: 20111010
  Serious: Yes (Hospitalization)
  Sender: FDA-Public Use
  Company Number: B0554624A

PATIENT
  Sex: Female
  Weight: 47 kg

DRUGS (3)
  1. PREDNISOLONE [Suspect]
     Indication: MULTIPLE MYELOMA
     Route: 048
     Dates: start: 20080419
  2. MELPHALAN [Suspect]
     Indication: MULTIPLE MYELOMA
     Route: 048
     Dates: start: 20080419
  3. PLACEBO [Suspect]
     Indication: MULTIPLE MYELOMA
     Dosage: 10MG PER DAY
     Route: 048
     Dates: start: 20080419

REACTIONS (4)
  - VOMITING [None]
  - SYNCOPE [None]
  - NAUSEA [None]
  - BONE PAIN [None]
